FAERS Safety Report 4769818-X (Version None)
Quarter: 2005Q3

REPORT INFORMATION
  Report Type: 
  Country: None (occurrence: None)
  Receive Date: 20050912
  Receipt Date: 20050630
  Transmission Date: 20060218
  Serious: Yes (Hospitalization)
  Sender: FDA-Public Use
  Company Number: 2005-01411

PATIENT
  Age: 63 Year
  Sex: Male
  Weight: 77.1 kg

DRUGS (6)
  1. VELCADE [Suspect]
     Indication: MULTIPLE MYELOMA
     Dosage: 2.60 MG, 2/WEEK, IV BOLUS; 1.90 MG, 2/WEEK, IV BOLUS
     Route: 040
     Dates: start: 20050606, end: 20050616
  2. VELCADE [Suspect]
     Indication: MULTIPLE MYELOMA
     Dosage: 2.60 MG, 2/WEEK, IV BOLUS; 1.90 MG, 2/WEEK, IV BOLUS
     Route: 040
     Dates: start: 20050628, end: 20050628
  3. ACETYLSALICYLIC ACID SRT [Concomitant]
  4. VITAMIN B6 [Concomitant]
  5. ESCITALOPRAM OXALATE [Concomitant]
  6. IBUPROFEN [Concomitant]

REACTIONS (4)
  - ANAEMIA [None]
  - ILEUS [None]
  - PANCREATITIS ACUTE [None]
  - THROMBOCYTOPENIA [None]
